FAERS Safety Report 21434682 (Version 3)
Quarter: 2022Q4

REPORT INFORMATION
  Report Type: Report from Study
  Country: JP (occurrence: JP)
  Receive Date: 20221010
  Receipt Date: 20221118
  Transmission Date: 20230112
  Serious: Yes (Other)
  Sender: FDA-Public Use
  Company Number: JP-ASTELLAS-2022JP005274

PATIENT
  Age: 83 Year
  Sex: Male
  Weight: 65 kg

DRUGS (5)
  1. ENFORTUMAB VEDOTIN [Suspect]
     Active Substance: ENFORTUMAB VEDOTIN
     Indication: Transitional cell carcinoma
     Route: 041
     Dates: start: 20220316
  2. GLYCOSAMINOGLYCANS [Concomitant]
     Active Substance: GLYCOSAMINOGLYCANS
     Indication: Pruritus
     Dosage: UNK UNK, UNKNOWN FREQ.
     Route: 065
     Dates: start: 20220321
  3. BETAMETHASONE DIPROPIONATE [Concomitant]
     Active Substance: BETAMETHASONE DIPROPIONATE
     Indication: Pruritus
     Dosage: UNK UNK, UNKNOWN FREQ.
     Route: 065
     Dates: start: 20220324
  4. BETAMETHASONE DIPROPIONATE [Concomitant]
     Active Substance: BETAMETHASONE DIPROPIONATE
     Indication: Skin disorder
  5. ALLELOCK [Concomitant]
     Active Substance: OLOPATADINE HYDROCHLORIDE
     Indication: Pruritus
     Dosage: UNK UNK, UNKNOWN FREQ.
     Route: 065
     Dates: start: 20220411

REACTIONS (3)
  - Thrombocytopenia [Recovered/Resolved]
  - Pruritus [Not Recovered/Not Resolved]
  - Skin disorder [Not Recovered/Not Resolved]

NARRATIVE: CASE EVENT DATE: 20220321
